FAERS Safety Report 19300515 (Version 1)
Quarter: 2021Q2

REPORT INFORMATION
  Report Type: Spontaneous
  Country: US (occurrence: US)
  Receive Date: 20210525
  Receipt Date: 20210525
  Transmission Date: 20210717
  Serious: No
  Sender: FDA-Public Use
  Company Number: US-GLAXOSMITHKLINE-USCH2021030993

PATIENT
  Sex: Female

DRUGS (1)
  1. CHILDRENS ADVIL [Suspect]
     Active Substance: IBUPROFEN
     Indication: HEADACHE

REACTIONS (4)
  - Tongue discomfort [Unknown]
  - Thermal burn [Unknown]
  - Oral discomfort [Unknown]
  - Product use issue [Unknown]
